FAERS Safety Report 5673591-0 (Version None)
Quarter: 2008Q1

REPORT INFORMATION
  Report Type: 
  Country: None (occurrence: None)
  Receive Date: 20080319
  Receipt Date: 20080317
  Transmission Date: 20080703
  Serious: Yes (Death)
  Sender: FDA-Public Use
  Company Number: JP-BOEHRINGER INGELHEIM GMBH, GERMANY-2007-BP-25645NB

PATIENT
  Sex: Male
  Weight: 64.5 kg

DRUGS (3)
  1. MICARDIS [Suspect]
     Indication: HYPERTENSION
     Route: 048
     Dates: start: 20061125, end: 20061212
  2. ASPIRIN [Suspect]
     Indication: PROPHYLAXIS
     Route: 048
     Dates: end: 20061212
  3. CARDENALIN [Suspect]
     Indication: HYPERTENSION
     Route: 048
     Dates: start: 20061001, end: 20061208

REACTIONS (1)
  - DEATH [None]
